FAERS Safety Report 6677681-5 (Version None)
Quarter: 2010Q2

REPORT INFORMATION
  Report Type: 
  Country: None (occurrence: None)
  Receive Date: 20100412
  Receipt Date: 20100325
  Transmission Date: 20101027
  Serious: No
  Sender: FDA-Public Use
  Company Number: GB-DENTSPLY-2010-0043-EUR

PATIENT
  Age: 0 Year
  Sex: Female

DRUGS (7)
  1. CITANEST [Suspect]
     Dates: start: 20100224
  2. RIZATRIPTAN BENZOATE [Suspect]
     Indication: MIGRAINE
  3. LIGNOCAINE ADRENALINE [Suspect]
  4. SCANDONEST PLAIN [Suspect]
  5. SEPTANEST [Suspect]
  6. PIZOTIFEN [Concomitant]
  7. SERTRALINE HCL [Concomitant]

REACTIONS (3)
  - DISORIENTATION [None]
  - DRUG INTERACTION [None]
  - TACHYCARDIA [None]
